FAERS Safety Report 25889530 (Version 1)
Quarter: 2025Q4

REPORT INFORMATION
  Report Type: Spontaneous
  Country: AU (occurrence: None)
  Receive Date: 20251007
  Receipt Date: 20251007
  Transmission Date: 20260118
  Serious: Yes (Other)
  Sender: ENDO
  Company Number: AU-ENDO USA, INC.-2025-001990

PATIENT
  Sex: Male

DRUGS (2)
  1. AVEED [Suspect]
     Active Substance: TESTOSTERONE UNDECANOATE
     Indication: Product used for unknown indication
     Dosage: 1 DOSAGE FORM, EVERY 3 MONTHS (QUARTERLY, FOR 2 YEARS)
     Route: 065
  2. AVEED [Suspect]
     Active Substance: TESTOSTERONE UNDECANOATE
     Dosage: 1 DOSAGE FORM, EVERY 8 WEEKS
     Route: 065

REACTIONS (4)
  - CSF pressure increased [Unknown]
  - Cerebral disorder [Unknown]
  - Polycythaemia [Unknown]
  - Malaise [Unknown]

NARRATIVE: CASE EVENT DATE: 20170101
